FAERS Safety Report 8914471 (Version 1)
Quarter: 2012Q4

REPORT INFORMATION
  Report Type: Report from Study
  Country: JP (occurrence: JP)
  Receive Date: 20121116
  Receipt Date: 20121116
  Transmission Date: 20130627
  Serious: Yes (Other)
  Sender: FDA-Public Use
  Company Number: JP-US-EMD SERONO, INC.-7158109

PATIENT
  Sex: Female
  Weight: 51 kg

DRUGS (2)
  1. GONAL-F [Suspect]
     Indication: POLYCYSTIC OVARIES
     Route: 058
     Dates: start: 20100119, end: 20100124
  2. HCG [Concomitant]
     Indication: POLYCYSTIC OVARIES
     Route: 058
     Dates: start: 20100125, end: 20100125

REACTIONS (1)
  - Vanishing twin syndrome [Not Recovered/Not Resolved]
